FAERS Safety Report 5329798-5 (Version None)
Quarter: 2007Q2

REPORT INFORMATION
  Report Type: 
  Country: None (occurrence: None)
  Receive Date: 20070517
  Receipt Date: 20070517
  Transmission Date: 20071010
  Serious: Yes (Life-Threatening)
  Sender: FDA-Public Use
  Company Number: None

PATIENT
  Age: 44 Year
  Sex: Male
  Weight: 83.9154 kg

DRUGS (3)
  1. LOVASTATIN [Suspect]
     Indication: BLOOD CHOLESTEROL INCREASED
     Dosage: 1 TABLET ONCE DAILY PO
     Route: 048
     Dates: start: 20070512, end: 20070515
  2. LOVASTATIN [Suspect]
     Indication: FAMILIAL RISK FACTOR
     Dosage: 1 TABLET ONCE DAILY PO
     Route: 048
     Dates: start: 20070512, end: 20070515
  3. LOVASTATIN [Suspect]
     Indication: LOW DENSITY LIPOPROTEIN INCREASED
     Dosage: 1 TABLET ONCE DAILY PO
     Route: 048
     Dates: start: 20070512, end: 20070515

REACTIONS (7)
  - AGGRESSION [None]
  - ANXIETY [None]
  - DISSOCIATIVE IDENTITY DISORDER [None]
  - FEELING ABNORMAL [None]
  - POOR QUALITY SLEEP [None]
  - RESTLESSNESS [None]
  - SLEEP DISORDER [None]
